FAERS Safety Report 24784348 (Version 1)
Quarter: 2024Q4

REPORT INFORMATION
  Report Type: Spontaneous
  Country: SE (occurrence: SE)
  Receive Date: 20241227
  Receipt Date: 20241227
  Transmission Date: 20250115
  Serious: Yes (Hospitalization, Other)
  Sender: EISAI
  Company Number: SE-Eisai-EC-2024-181424

PATIENT
  Age: 65 Year
  Sex: Female

DRUGS (7)
  1. LENVIMA [Suspect]
     Active Substance: LENVATINIB
     Indication: Endometrial cancer metastatic
     Dosage: DOSE AND FREQUENCY UNKNOWN
     Route: 048
     Dates: start: 20230919, end: 20230930
  2. LENVIMA [Suspect]
     Active Substance: LENVATINIB
     Dosage: FREQUENCY UNKNOWN
     Route: 048
     Dates: start: 20231009, end: 20231010
  3. LENVIMA [Suspect]
     Active Substance: LENVATINIB
     Dosage: FREQUENCY UNKNOWN
     Route: 048
     Dates: start: 20231013, end: 20231219
  4. PEMBROLIZUMAB [Concomitant]
     Active Substance: PEMBROLIZUMAB
     Indication: Endometrial cancer metastatic
     Dosage: DOSE AND FREQUENCY UNKNOWN
     Route: 065
     Dates: start: 20230919, end: 2023
  5. PEMBROLIZUMAB [Concomitant]
     Active Substance: PEMBROLIZUMAB
     Dosage: DOSE AND FREQUENCY UNKNOWN
     Route: 065
     Dates: start: 20231019, end: 2023
  6. PEMBROLIZUMAB [Concomitant]
     Active Substance: PEMBROLIZUMAB
     Dosage: DOSE AND FREQUENCY UNKNOWN
     Route: 065
     Dates: start: 20231119, end: 2023
  7. PEMBROLIZUMAB [Concomitant]
     Active Substance: PEMBROLIZUMAB
     Route: 065
     Dates: start: 20231204

REACTIONS (8)
  - Pyrexia [Unknown]
  - Rash [Recovered/Resolved]
  - Arthralgia [Unknown]
  - Chills [Unknown]
  - Pyoderma gangrenosum [Unknown]
  - Bacterial infection [Unknown]
  - Skin wound [Unknown]
  - Hypotonia [Unknown]

NARRATIVE: CASE EVENT DATE: 20230930
